FAERS Safety Report 7450020-8 (Version None)
Quarter: 2011Q2

REPORT INFORMATION
  Report Type: 
  Country: None (occurrence: None)
  Receive Date: 20110502
  Receipt Date: 20090917
  Transmission Date: 20111010
  Serious: Yes (Hospitalization, Other)
  Sender: FDA-Public Use
  Company Number: US-BAYER-200933863NA

PATIENT
  Age: 74 Year
  Sex: Female
  Weight: 88.1 kg

DRUGS (43)
  1. DIPHENHYDRAMINE [Concomitant]
     Dosage: 45 MG, UNK
     Route: 042
     Dates: start: 20030806
  2. NITROGLYCERIN [Concomitant]
     Dosage: 50 MG, UNK
     Route: 042
     Dates: start: 20040107
  3. ALTACE [Concomitant]
     Dosage: 2.5-5 MG DAILY
     Route: 048
     Dates: start: 20040109
  4. NEO-SYNEPHRINOL [Concomitant]
     Dosage: 200-300 MCG
     Route: 042
     Dates: start: 20040112
  5. TRASYLOL [Suspect]
     Dosage: 50 ML/HR (INFUSION)
     Route: 042
     Dates: start: 20040112, end: 20040112
  6. VERSED [Concomitant]
     Dosage: 1-3 MG, UNK
     Route: 042
     Dates: start: 20040112
  7. EPINEPHRINE [Concomitant]
     Dosage: 10 MCG/MIN DROPS
     Dates: start: 20030807
  8. ASPIRIN [Concomitant]
     Dosage: 81-325 MG
     Route: 048
     Dates: start: 20040107
  9. DYAZIDE [Concomitant]
     Dosage: 37.5 MG, QD (LONG TERM USE)
     Route: 048
  10. LIPITOR [Concomitant]
     Dosage: 10 MG, UNK (LONG TERM USE)
     Route: 048
  11. TRASYLOL [Suspect]
     Indication: CORONARY ARTERY BYPASS
     Dosage: 1 ML,(INITIAL)
     Route: 042
     Dates: start: 20040112, end: 20040112
  12. TRASYLOL [Suspect]
     Dosage: 200 ML (LOADING)
     Route: 042
     Dates: start: 20040112, end: 20040112
  13. PLAVIX [Concomitant]
     Dosage: 300 MG, QD
     Route: 048
     Dates: start: 20040107
  14. VERSED [Concomitant]
     Dosage: 1-2 MG
     Route: 042
     Dates: start: 20030806
  15. ACETAMINOPHEN [Concomitant]
     Dosage: 325-650 MG, UNK
     Route: 048
     Dates: start: 20030806
  16. ADENOSINE [Concomitant]
     Dosage: 3-6 MG
     Dates: start: 20030806
  17. NITROGLYCERIN [Concomitant]
     Dosage: 15-50 UNK
     Route: 042
     Dates: start: 20040112
  18. PROTONIX [Concomitant]
     Dosage: 40 MG, QD (LONG TERM USE)
     Route: 048
  19. ROCURONIUM [Concomitant]
     Dosage: 10 MG, UNK
     Route: 042
     Dates: start: 20040112
  20. VECURONIUM BROMIDE [Concomitant]
     Dosage: 3 MG, UNK
     Route: 042
     Dates: start: 20040112
  21. VISIPAQUE [IODINE,IODIXANOL] [Concomitant]
     Dosage: 75 ML, UNK
     Dates: start: 20040112
  22. LASIX [Concomitant]
     Dosage: 30-45 MG
     Route: 042
     Dates: start: 20030806
  23. LOVENOX [Concomitant]
     Dosage: 90 MG (1MG/KR)
     Route: 058
     Dates: start: 20030807
  24. LEVOPHED [Concomitant]
     Dosage: 10 ML, UNK
     Dates: start: 20030806
  25. ALEVE (CAPLET) [Concomitant]
     Dosage: 400 MG Q8HR (LONG TERM USE)
     Route: 048
  26. VERAPAMIL [Concomitant]
     Dosage: 5 MG, UNK
     Route: 042
     Dates: start: 20040112
  27. CEFUROXIME [Concomitant]
     Dosage: 1500 MG, UNK
     Dates: start: 20040109
  28. NAPROSYN [Concomitant]
     Dosage: PRN, LONG TERM USE
     Route: 048
  29. HEPARIN [Concomitant]
     Dosage: 1000-3500 UNITS
     Route: 042
     Dates: start: 20040108
  30. INSULIN [Concomitant]
     Dosage: 36 U, UNK
     Route: 042
     Dates: start: 20040112
  31. PROCAINAMIDE [Concomitant]
     Dosage: 1000 MG, UNK
     Route: 042
     Dates: start: 20040112
  32. ISOFLURANE [Concomitant]
     Dosage: UNK
     Route: 055
     Dates: start: 20040112
  33. TRASYLOL [Suspect]
     Dosage: 200 ML (PRIME)
     Route: 042
     Dates: start: 20040112, end: 20040112
  34. ATENOLOL [Concomitant]
     Dosage: 50 MG, QD LONG TERM USE
     Route: 048
  35. CARDIZEM [Concomitant]
     Dosage: 5 MG, UNK
  36. KETAMINE HCL [Concomitant]
     Dosage: 25 MG, UNK
     Route: 042
     Dates: start: 20030806
  37. DOPAMINE HCL [Concomitant]
     Dosage: 2.5-3.00 ML, UNK
     Route: 042
     Dates: start: 20040112
  38. MANNITOL [Concomitant]
     Dosage: 100 ML, UNK
     Route: 042
     Dates: start: 20040112
  39. SUFENTANIL [Concomitant]
     Dosage: 200 MCG, UNK
     Route: 042
     Dates: start: 20040112
  40. LASIX [Concomitant]
     Dosage: 40 MG, UNK
     Route: 042
     Dates: start: 20040108
  41. HEPARIN [Concomitant]
     Dosage: 10-27 UNITS, UNK
     Route: 042
     Dates: start: 20040112
  42. NITROGLYCERIN [Concomitant]
     Dosage: 20 MCG/MIN
     Route: 042
     Dates: start: 20040111
  43. PROTAMINE SULFATE [Concomitant]
     Dosage: 10-500 UNK
     Route: 042
     Dates: start: 20040112

REACTIONS (10)
  - MYOCARDIAL INFARCTION [None]
  - PAIN [None]
  - HEART INJURY [None]
  - UNEVALUABLE EVENT [None]
  - RENAL INJURY [None]
  - ANXIETY [None]
  - FEAR [None]
  - INJURY [None]
  - STRESS [None]
  - EMOTIONAL DISTRESS [None]
